FAERS Safety Report 18041830 (Version 1)
Quarter: 2020Q3

REPORT INFORMATION
  Report Type: Spontaneous
  Country: HR (occurrence: HR)
  Receive Date: 20200720
  Receipt Date: 20200720
  Transmission Date: 20201103
  Serious: Yes (Other)
  Sender: FDA-Public Use
  Company Number: HR-TEVA-2020-HR-1801427

PATIENT
  Age: 82 Year
  Sex: Female
  Weight: 80 kg

DRUGS (5)
  1. FURSEMID [Suspect]
     Active Substance: FUROSEMIDE
     Dosage: 40 MG
     Route: 048
  2. COLOSPA [Suspect]
     Active Substance: MEBEVERINE HYDROCHLORIDE
     Dosage: 200 MG
     Route: 048
  3. CONCOR [Suspect]
     Active Substance: BISOPROLOL FUMARATE
     Dosage: 5 MG
     Route: 048
  4. PANTOPRAZOLE [Suspect]
     Active Substance: PANTOPRAZOLE
     Indication: GASTRIC DISORDER
     Dosage: 40 MG
     Route: 048
  5. REGLAN [Concomitant]
     Active Substance: METOCLOPRAMIDE HYDROCHLORIDE
     Dosage: 10 MG
     Route: 048

REACTIONS (2)
  - Faeces discoloured [Recovered/Resolved]
  - Small intestinal haemorrhage [Recovered/Resolved]

NARRATIVE: CASE EVENT DATE: 20200605
